FAERS Safety Report 15324530 (Version 1)
Quarter: 2018Q3

REPORT INFORMATION
  Report Type: Spontaneous
  Country: US (occurrence: US)
  Receive Date: 20180828
  Receipt Date: 20180828
  Transmission Date: 20181010
  Serious: No
  Sender: FDA-Public Use
  Company Number: US-GLENMARK PHARMACEUTICALS-2018GMK036491

PATIENT

DRUGS (1)
  1. LEVONORGESTREL/ETHINYL ESTRADIOL TABLETS USP [Suspect]
     Active Substance: ETHINYL ESTRADIOL\LEVONORGESTREL
     Indication: CONTRACEPTION
     Dosage: 1 DF, OD (0.09/0.02 MG)
     Route: 065

REACTIONS (2)
  - No adverse event [Unknown]
  - Drug dose omission [Unknown]
